FAERS Safety Report 20787115 (Version 2)
Quarter: 2022Q2

REPORT INFORMATION
  Report Type: Spontaneous
  Country: DE (occurrence: DE)
  Receive Date: 20220505
  Receipt Date: 20220522
  Transmission Date: 20220721
  Serious: Yes (Other)
  Sender: FDA-Public Use
  Company Number: DE-AMGEN-DEUSP2022073827

PATIENT
  Age: 33 Year
  Sex: Male

DRUGS (3)
  1. BEVACIZUMAB [Suspect]
     Active Substance: BEVACIZUMAB
     Indication: Acoustic neuroma
     Dosage: 5 MILLIGRAM/KG, Q2WK (FOR 6 MONTHS)
     Route: 042
  2. BEVACIZUMAB [Suspect]
     Active Substance: BEVACIZUMAB
     Indication: Meningioma
     Dosage: 5 MILLIGRAM/KG, Q3WK (FOR 3 MONTHS)
     Route: 042
  3. BEVACIZUMAB [Suspect]
     Active Substance: BEVACIZUMAB
     Dosage: 5 MILLIGRAM/KG, Q4WK (FOR 15 MONTHS)
     Route: 042

REACTIONS (4)
  - Meningioma [Unknown]
  - Drug effective for unapproved indication [Unknown]
  - Off label use [Unknown]
  - Blood pressure inadequately controlled [Unknown]
